FAERS Safety Report 22162724 (Version 4)
Quarter: 2023Q2

REPORT INFORMATION
  Report Type: Report from Study
  Country: CN (occurrence: None)
  Receive Date: 20230331
  Receipt Date: 20230616
  Transmission Date: 20230721
  Serious: Yes (Life-Threatening, Hospitalization)
  Sender: FDA-Public Use
  Company Number: 2023A073542

PATIENT
  Age: 69 Year
  Sex: Female

DRUGS (63)
  1. DURVALUMAB [Suspect]
     Active Substance: DURVALUMAB
     Indication: Oesophageal squamous cell carcinoma
     Route: 042
     Dates: start: 20230208, end: 20230208
  2. DURVALUMAB [Suspect]
     Active Substance: DURVALUMAB
     Indication: Oesophageal squamous cell carcinoma
     Route: 042
     Dates: start: 20230324, end: 20230324
  3. DURVALUMAB [Suspect]
     Active Substance: DURVALUMAB
     Indication: Oesophageal squamous cell carcinoma
     Route: 042
     Dates: start: 20230612, end: 20230612
  4. CISPLATIN [Suspect]
     Active Substance: CISPLATIN
     Indication: Oesophageal squamous cell carcinoma
     Dates: start: 20230208, end: 20230208
  5. CISPLATIN [Suspect]
     Active Substance: CISPLATIN
     Indication: Oesophageal squamous cell carcinoma
     Dates: start: 20230215, end: 20230215
  6. CISPLATIN [Suspect]
     Active Substance: CISPLATIN
     Indication: Oesophageal squamous cell carcinoma
     Dates: start: 20230222, end: 20230222
  7. CISPLATIN [Suspect]
     Active Substance: CISPLATIN
     Indication: Oesophageal squamous cell carcinoma
     Dates: start: 20230301, end: 20230301
  8. CAPECITABINE [Suspect]
     Active Substance: CAPECITABINE
     Indication: Oesophageal squamous cell carcinoma
     Dates: start: 20230208, end: 20230208
  9. CAPECITABINE [Suspect]
     Active Substance: CAPECITABINE
     Indication: Oesophageal squamous cell carcinoma
     Dates: start: 20230209, end: 20230212
  10. CAPECITABINE [Suspect]
     Active Substance: CAPECITABINE
     Indication: Oesophageal squamous cell carcinoma
     Dates: start: 20230213, end: 20230213
  11. CAPECITABINE [Suspect]
     Active Substance: CAPECITABINE
     Indication: Oesophageal squamous cell carcinoma
     Dates: start: 20230215, end: 20230219
  12. CAPECITABINE [Suspect]
     Active Substance: CAPECITABINE
     Indication: Oesophageal squamous cell carcinoma
     Dates: start: 20230222, end: 20230226
  13. CAPECITABINE [Suspect]
     Active Substance: CAPECITABINE
     Indication: Oesophageal squamous cell carcinoma
     Dates: start: 20230301, end: 20230305
  14. ILAPRAZOLE SODIUM FOR INJECTION [Concomitant]
     Indication: Gastric disorder
     Route: 042
     Dates: start: 20230301, end: 20230302
  15. ILAPRAZOLE SODIUM FOR INJECTION [Concomitant]
     Indication: Gastric disorder
     Route: 042
     Dates: start: 20230308, end: 20230316
  16. FOSAPREPITANT DIMEGLUMINER FOR INJECTION [Concomitant]
     Indication: Prophylaxis of nausea and vomiting
     Route: 042
     Dates: start: 20230301, end: 20230301
  17. AMBROXOL HYDROCHLORIDE FOR INJECTION [Concomitant]
     Indication: Prophylaxis
     Route: 055
     Dates: start: 20230301, end: 20230302
  18. AMBROXOL HYDROCHLORIDE FOR INJECTION [Concomitant]
     Indication: Mucosal inflammation
     Route: 055
     Dates: start: 20230301, end: 20230302
  19. AMBROXOL HYDROCHLORIDE FOR INJECTION [Concomitant]
     Indication: Prophylaxis
     Route: 055
     Dates: start: 20230308, end: 20230309
  20. AMBROXOL HYDROCHLORIDE FOR INJECTION [Concomitant]
     Indication: Mucosal inflammation
     Route: 055
     Dates: start: 20230308, end: 20230309
  21. BUDESONIDE [Concomitant]
     Active Substance: BUDESONIDE
     Indication: Prophylaxis
     Route: 055
     Dates: start: 20230301, end: 20230302
  22. BUDESONIDE [Concomitant]
     Active Substance: BUDESONIDE
     Indication: Mucosal inflammation
     Route: 055
     Dates: start: 20230301, end: 20230302
  23. BUDESONIDE [Concomitant]
     Active Substance: BUDESONIDE
     Indication: Prophylaxis
     Route: 055
     Dates: start: 20230308, end: 20230316
  24. BUDESONIDE [Concomitant]
     Active Substance: BUDESONIDE
     Indication: Mucosal inflammation
     Route: 055
     Dates: start: 20230308, end: 20230316
  25. CHYMOTRYPSIN [Concomitant]
     Active Substance: CHYMOTRYPSIN
     Indication: Prophylaxis
     Dosage: 12000,IU,DAILY
     Route: 055
     Dates: start: 20230301, end: 20230302
  26. CHYMOTRYPSIN [Concomitant]
     Active Substance: CHYMOTRYPSIN
     Indication: Mucosal inflammation
     Dosage: 12000,IU,DAILY
     Route: 055
     Dates: start: 20230301, end: 20230302
  27. CHYMOTRYPSIN [Concomitant]
     Active Substance: CHYMOTRYPSIN
     Indication: Prophylaxis
     Dosage: 12000,IU,DAILY
     Route: 055
     Dates: start: 20230308, end: 20230316
  28. CHYMOTRYPSIN [Concomitant]
     Active Substance: CHYMOTRYPSIN
     Indication: Mucosal inflammation
     Dosage: 12000,IU,DAILY
     Route: 055
     Dates: start: 20230308, end: 20230316
  29. FAT EMULSION, AMINO ACIDS(17) AND GLUCOSE(19%) INJECTION [Concomitant]
     Indication: Nutritional supplementation
     Route: 042
     Dates: start: 20230307, end: 20230307
  30. VITAMINS [Concomitant]
     Active Substance: VITAMINS
     Indication: Nutritional supplementation
     Dosage: 1.0 BOTTLE DAILY
     Route: 042
     Dates: start: 20230308, end: 20230316
  31. COMPOUND AMINO ACIDS INJECTION(18AA-VII) [Concomitant]
     Indication: Nutritional supplementation
     Route: 042
     Dates: start: 20230308, end: 20230316
  32. ALANYL GLUTAMINE [Concomitant]
     Active Substance: ALANYL GLUTAMINE
     Indication: Nutritional supplementation
     Route: 042
     Dates: start: 20230308, end: 20230316
  33. LONG CHAIN FAT EMULSION INJECTION (OO) [Concomitant]
     Indication: Nutritional supplementation
     Route: 042
     Dates: start: 20230308, end: 20230316
  34. DOLASETRON MESYLATE INJECTION [Concomitant]
     Indication: Prophylaxis of nausea and vomiting
     Route: 042
     Dates: start: 20230308, end: 20230316
  35. MONOAMMONIUM GLYCYRRHIZINATE AND CYSTEINE AND SODIUM CHLORIDE INJEC... [Concomitant]
     Indication: Liver transplant rejection
     Route: 042
     Dates: start: 20230308, end: 20230314
  36. MONOAMMONIUM GLYCYRRHIZINATE AND CYSTEINE AND SODIUM CHLORIDE INJEC... [Concomitant]
     Indication: Liver transplant rejection
     Route: 042
     Dates: start: 20230301, end: 20230302
  37. LEVOFLOXACIN HYDROCHLORIDE FOR INJECTION [Concomitant]
     Indication: Infection prophylaxis
     Route: 042
     Dates: start: 20230308, end: 20230309
  38. 10% SODIUM CHLORIDE INJECTION [Concomitant]
     Indication: Hyponatraemia
     Route: 048
     Dates: start: 20230309, end: 20230309
  39. RECOMBINANT HUMANTHROMBOPOIET IN INJECTION [Concomitant]
     Indication: Platelet count decreased
     Dosage: 15000.0 U DAILY
     Route: 058
     Dates: start: 20230310, end: 20230316
  40. RECOMBINANT HUMAN GRANULOCYTE COLONY-STIMULATING FACTOR INJECTION [Concomitant]
     Indication: White blood cell count decreased
     Route: 058
     Dates: start: 20230310, end: 20230312
  41. RECOMBINANT HUMAN GRANULOCYTE COLONY-STIMULATING FACTOR INJECTION [Concomitant]
     Indication: Prophylaxis
     Route: 058
     Dates: start: 20230310, end: 20230312
  42. RECOMBINANT HUMAN GRANULOCYTE COLONY-STIMULATING FACTOR INJECTION [Concomitant]
     Indication: White blood cell count decreased
     Route: 058
     Dates: start: 20230313, end: 20230316
  43. RECOMBINANT HUMAN GRANULOCYTE COLONY-STIMULATING FACTOR INJECTION [Concomitant]
     Indication: Prophylaxis
     Route: 058
     Dates: start: 20230313, end: 20230316
  44. HUMAN ALBUMIN INJECTION [Concomitant]
     Indication: Hypoalbuminaemia
     Route: 042
     Dates: start: 20230310, end: 20230313
  45. HUMAN ALBUMIN INJECTION [Concomitant]
     Indication: Blood albumin
     Route: 042
     Dates: start: 20230310, end: 20230313
  46. HUMAN ALBUMIN INJECTION [Concomitant]
     Indication: Hypoalbuminaemia
     Route: 042
     Dates: start: 20230314, end: 20230316
  47. HUMAN ALBUMIN INJECTION [Concomitant]
     Indication: Blood albumin
     Route: 042
     Dates: start: 20230314, end: 20230316
  48. EPIMEDIUM, PSORALUM PSORALUM, ACONITE (MADE), WOLFBERRY, ASTRAGALUS... [Concomitant]
     Indication: Prophylaxis
     Route: 048
     Dates: start: 20230314
  49. OXYCODONE AND ACETAMINOPHEN [Concomitant]
     Active Substance: ACETAMINOPHEN\OXYCODONE HYDROCHLORIDE
     Indication: Mucosal inflammation
     Route: 048
     Dates: start: 20230301, end: 20230302
  50. SODIUM CHLORIDE [Concomitant]
     Active Substance: SODIUM CHLORIDE
     Indication: Blood sodium
     Route: 042
     Dates: start: 20230311, end: 20230314
  51. SODIUM CHLORIDE [Concomitant]
     Active Substance: SODIUM CHLORIDE
     Indication: Hyponatraemia
     Route: 042
     Dates: start: 20230311, end: 20230314
  52. SODIUM CHLORIDE [Concomitant]
     Active Substance: SODIUM CHLORIDE
     Indication: Blood sodium
     Route: 042
     Dates: start: 20230308, end: 20230310
  53. SODIUM CHLORIDE [Concomitant]
     Active Substance: SODIUM CHLORIDE
     Indication: Hyponatraemia
     Route: 042
     Dates: start: 20230308, end: 20230310
  54. METOPROLOL TARTRATE [Concomitant]
     Active Substance: METOPROLOL TARTRATE
     Indication: Hypertension
     Dosage: MG DAILY
     Route: 048
     Dates: start: 2018
  55. METFORMIN TABLETS [Concomitant]
     Indication: Diabetes mellitus
     Route: 048
     Dates: start: 2018
  56. DAPAGLIFLOZIN [Concomitant]
     Active Substance: DAPAGLIFLOZIN
     Indication: Diabetes mellitus
     Route: 048
     Dates: start: 2018
  57. CLOPIDOGREL BISULFATE [Concomitant]
     Active Substance: CLOPIDOGREL BISULFATE
     Indication: Coronary artery disease
     Route: 048
     Dates: start: 2018
  58. DIHYDROXYALUMINUM AMINOACETATE,HEAVY MAGNESIUM CARBONATE AND ASPIRI... [Concomitant]
     Indication: Coronary artery disease
     Route: 048
     Dates: start: 2018
  59. SODIUM BICARBONATE RINGER^S INJECTION [Concomitant]
     Indication: Electrolyte imbalance
     Route: 042
     Dates: start: 20230301, end: 20230302
  60. OLASETRON MESYLATE INJECTION [Concomitant]
     Indication: Prophylaxis of nausea and vomiting
     Route: 042
     Dates: start: 20230301, end: 20230302
  61. DIPHENHYDRAMINE HYDROCHLORIDE [Concomitant]
     Active Substance: DIPHENHYDRAMINE HYDROCHLORIDE
     Indication: Hypersensitivity
     Route: 030
     Dates: start: 20230301, end: 20230301
  62. LACTULOSE [Concomitant]
     Active Substance: LACTULOSE
     Indication: Constipation
     Route: 048
     Dates: start: 20230223
  63. GLYCEROL ENEMA [Concomitant]
     Indication: Constipation
     Dosage: 15.0ML AS REQUIRED
     Route: 050
     Dates: start: 20230223

REACTIONS (3)
  - Type 2 diabetes mellitus [Recovered/Resolved]
  - Hypernatraemia [Recovered/Resolved]
  - Arrhythmia [Recovered/Resolved]

NARRATIVE: CASE EVENT DATE: 20230326
